FAERS Safety Report 4990271-5 (Version None)
Quarter: 2006Q2

REPORT INFORMATION
  Report Type: 
  Country: None (occurrence: None)
  Receive Date: 20060503
  Receipt Date: 20040909
  Transmission Date: 20061013
  Serious: Yes (Other)
  Sender: FDA-Public Use
  Company Number: FR-GLAXOSMITHKLINE-B0344805A

PATIENT
  Age: 30 Year
  Sex: Female

DRUGS (1)
  1. LITHIUM [Suspect]
     Indication: BIPOLAR DISORDER
     Route: 065
     Dates: start: 20010901

REACTIONS (5)
  - AUTOIMMUNE THYROIDITIS [None]
  - BLOOD THYROID STIMULATING HORMONE INCREASED [None]
  - CONDITION AGGRAVATED [None]
  - HYPOTHYROIDISM [None]
  - MANIA [None]
